FAERS Safety Report 6955097-1 (Version None)
Quarter: 2010Q3

REPORT INFORMATION
  Report Type: 
  Country: None (occurrence: None)
  Receive Date: 20100817
  Receipt Date: 20091228
  Transmission Date: 20110219
  Serious: No
  Sender: FDA-Public Use
  Company Number: 20107888

PATIENT
  Age: 19 Year
  Sex: Female

DRUGS (1)
  1. LIORESAL [Suspect]
     Indication: MUSCLE SPASTICITY
     Dosage: 82.54 MCG, DAILY, INTRATHECAL
     Route: 037

REACTIONS (3)
  - CENTRAL NERVOUS SYSTEM INFECTION [None]
  - IMPLANT SITE PAIN [None]
  - WOUND INFECTION [None]
